FAERS Safety Report 9371596 (Version 1)
Quarter: 2013Q2

REPORT INFORMATION
  Report Type: Spontaneous
  Country: US (occurrence: None)
  Receive Date: 20130626
  Receipt Date: 20130626
  Transmission Date: 20140414
  Serious: Yes (Other)
  Sender: FDA-Public Use
  Company Number: None

PATIENT
  Age: 59 Year
  Sex: Male
  Weight: 90.72 kg

DRUGS (1)
  1. VIIBRYD [Suspect]
     Indication: DEPRESSION
     Dosage: 1 DAILY PO?APPROXIMATELY FOUR MONTHS
     Route: 048

REACTIONS (6)
  - Diarrhoea [None]
  - Decreased appetite [None]
  - Nausea [None]
  - Haemorrhoids [None]
  - Mania [None]
  - Drug interaction [None]
